FAERS Safety Report 12060222 (Version 1)
Quarter: 2016Q1

REPORT INFORMATION
  Report Type: Spontaneous
  Country: US (occurrence: US)
  Receive Date: 20160210
  Receipt Date: 20160210
  Transmission Date: 20160526
  Serious: Yes (Other)
  Sender: FDA-Public Use
  Company Number: PHHY2016US015725

PATIENT
  Sex: Male

DRUGS (6)
  1. CYPROHEPTADINE. [Suspect]
     Active Substance: CYPROHEPTADINE
     Indication: AGGRESSION
     Route: 065
  2. PRAZOSIN [Suspect]
     Active Substance: PRAZOSIN
     Indication: AGGRESSION
     Route: 065
  3. RAMELTEON [Suspect]
     Active Substance: RAMELTEON
     Indication: AGGRESSION
     Route: 065
  4. ESZOPICLONE. [Suspect]
     Active Substance: ESZOPICLONE
     Indication: AGGRESSION
     Route: 065
  5. MELATONIN [Suspect]
     Active Substance: MELATONIN
     Indication: AGGRESSION
     Dosage: 12 MG, UNK
     Route: 065
  6. CLONAZEPAM. [Suspect]
     Active Substance: CLONAZEPAM
     Indication: AGGRESSION
     Dosage: 1 MG, UNK

REACTIONS (2)
  - Disease progression [Unknown]
  - Aggression [Unknown]
